FAERS Safety Report 8984448 (Version 1)
Quarter: 2012Q4

REPORT INFORMATION
  Report Type: Spontaneous
  Country: CA (occurrence: None)
  Receive Date: 20121213
  Receipt Date: 20121213
  Transmission Date: 20130627
  Serious: Yes (Other)
  Sender: FDA-Public Use
  Company Number: 1516620

PATIENT
  Age: 65 Year
  Sex: Male
  Weight: 79.6 kg

DRUGS (4)
  1. IRINOTECAN HYDROCHLORIDE TRIHYDRATE [Suspect]
     Indication: COLORECTAL CANCER
     Route: 042
     Dates: start: 20120215, end: 20120215
  2. ONDANSETRON [Concomitant]
  3. DEXAMETHASONE [Concomitant]
  4. LEVOTHYROXINE [Concomitant]

REACTIONS (12)
  - Burning sensation [None]
  - Palpitations [None]
  - Flushing [None]
  - Flushing [None]
  - Feeling hot [None]
  - Feeling hot [None]
  - Muscle tightness [None]
  - Paraesthesia oral [None]
  - Anxiety [None]
  - Hyperhidrosis [None]
  - Blood pressure systolic increased [None]
  - Infusion related reaction [None]
